FAERS Safety Report 19259269 (Version 1)
Quarter: 2021Q2

REPORT INFORMATION
  Report Type: Spontaneous
  Country: HK (occurrence: HK)
  Receive Date: 20210514
  Receipt Date: 20210514
  Transmission Date: 20210717
  Serious: Yes (Death, Other)
  Sender: FDA-Public Use
  Company Number: HK-OTSUKA-2021_015999

PATIENT
  Age: 4 Year
  Sex: Female

DRUGS (11)
  1. FLUDARABINE [Suspect]
     Active Substance: FLUDARABINE PHOSPHATE
     Indication: THALASSAEMIA
     Dosage: 40 MG/ M2 FOR FOUR DOSES (DAY ?8 TO ?5),
     Route: 065
     Dates: start: 2010
  2. FLUDARABINE [Suspect]
     Active Substance: FLUDARABINE PHOSPHATE
     Indication: BONE MARROW CONDITIONING REGIMEN
     Dosage: 40 MG/M2 FOR FOUR DOSES (DAY ?5 TO ?2)
     Route: 065
  3. THIOTEPA. [Suspect]
     Active Substance: THIOTEPA
     Indication: BONE MARROW CONDITIONING REGIMEN
     Dosage: 10 MG/KG (DAY ?6),
     Route: 065
  4. CYCLOSPORINE. [Suspect]
     Active Substance: CYCLOSPORINE
     Indication: GRAFT VERSUS HOST DISEASE
     Dosage: (2.5 MG/KG INTRAVENOUSLY EVERY 12 HOURS)
     Route: 042
  5. THIOTEPA. [Suspect]
     Active Substance: THIOTEPA
     Indication: THALASSAEMIA
     Dosage: 10 MG/KG (DAY ?4),
     Route: 065
     Dates: start: 2010
  6. BUSULFAN. [Suspect]
     Active Substance: BUSULFAN
     Indication: THALASSAEMIA
     Dosage: 0.8?1.1 MG/KG FOR 12 DOSES (DAY ?7 TO ?5),
     Route: 065
     Dates: start: 2010
  7. BUSULFAN. [Suspect]
     Active Substance: BUSULFAN
     Indication: BONE MARROW CONDITIONING REGIMEN
     Dosage: 0.8?1.1 MG/KG FOR 16 DOSES (DAY ?10 TO ?7)
     Route: 065
  8. CYCLOPHOSPHAMIDE. [Suspect]
     Active Substance: CYCLOPHOSPHAMIDE
     Indication: THALASSAEMIA
     Dosage: 50 MG/KG FOR TWO DOSES (DAY ?10 TO ?9),
     Route: 065
     Dates: start: 2010
  9. CYCLOPHOSPHAMIDE. [Suspect]
     Active Substance: CYCLOPHOSPHAMIDE
     Indication: BONE MARROW CONDITIONING REGIMEN
  10. CYCLOSPORINE. [Suspect]
     Active Substance: CYCLOSPORINE
     Dosage: (1.5 MG/KG INTRAVENOUSLY EVERY 12 HOUR)
     Route: 042
     Dates: start: 200712
  11. MYCOPHENOLATE MOFETIL. [Suspect]
     Active Substance: MYCOPHENOLATE MOFETIL
     Indication: GRAFT VERSUS HOST DISEASE
     Dosage: 15 MG/KG INTRAVENOUSLY EVERY 8 HOUR) FROM DAY ?3.
     Route: 042

REACTIONS (4)
  - Cystitis haemorrhagic [Unknown]
  - Product use in unapproved indication [Unknown]
  - Epstein-Barr virus associated lymphoproliferative disorder [Fatal]
  - Cytomegalovirus test positive [Unknown]
